FAERS Safety Report 26099409 (Version 2)
Quarter: 2025Q4

REPORT INFORMATION
  Report Type: Spontaneous
  Country: US (occurrence: US)
  Receive Date: 20251128
  Receipt Date: 20251219
  Transmission Date: 20260117
  Serious: No
  Sender: LEO PHARM
  Company Number: US-LEO Pharma-384510

PATIENT
  Age: 84 Year
  Sex: Female

DRUGS (1)
  1. ADBRY [Suspect]
     Active Substance: TRALOKINUMAB-LDRM
     Indication: Eczema
     Dosage: TREATMENT ONGOING??300 MG PEN, INJECT 2 PENS SUBCUTANEOUS ON DAY 1 (MD SAMPLE, ESTIMATE 10/31/25), T
     Route: 058
     Dates: start: 20251031

REACTIONS (2)
  - Rash [Unknown]
  - Pruritus [Unknown]
